FAERS Safety Report 5007558-2 (Version None)
Quarter: 2006Q2

REPORT INFORMATION
  Report Type: 
  Country: None (occurrence: None)
  Receive Date: 20060522
  Receipt Date: 20060510
  Transmission Date: 20061013
  Serious: Yes (Hospitalization, Other)
  Sender: FDA-Public Use
  Company Number: US-JNJFOC-20060306586

PATIENT
  Sex: Female

DRUGS (25)
  1. REMICADE [Suspect]
     Dosage: INFLIXIMAB INFUSION DISCONTINUED AFTER 30 MINUTES
     Route: 042
  2. REMICADE [Suspect]
     Route: 042
  3. REMICADE [Suspect]
     Route: 042
  4. REMICADE [Suspect]
     Route: 042
  5. REMICADE [Suspect]
     Route: 042
  6. REMICADE [Suspect]
     Route: 042
  7. REMICADE [Suspect]
     Route: 042
  8. REMICADE [Suspect]
     Route: 042
  9. REMICADE [Suspect]
     Route: 042
  10. REMICADE [Suspect]
     Route: 042
  11. PREDNISONE TAB [Concomitant]
  12. ASPIRIN [Concomitant]
  13. FUROSEMIDE [Concomitant]
  14. POTASSIUM CHLORIDE [Concomitant]
  15. COMBIVENT [Concomitant]
  16. COMBIVENT [Concomitant]
  17. ADVAIR INHALER [Concomitant]
  18. ADVAIR INHALER [Concomitant]
  19. SINGULAIR [Concomitant]
  20. INSULIN [Concomitant]
  21. NEXIUM [Concomitant]
  22. FERROUS SULFATE TAB [Concomitant]
  23. DESIPRAMINE HCL [Concomitant]
  24. PERPHENAZINE [Concomitant]
  25. TRAZODONE HCL [Concomitant]
     Dosage: AT HS

REACTIONS (3)
  - ATRIAL FIBRILLATION [None]
  - BLOOD GLUCOSE INCREASED [None]
  - INFUSION RELATED REACTION [None]
